FAERS Safety Report 16170644 (Version 2)
Quarter: 2019Q2

REPORT INFORMATION
  Report Type: Spontaneous
  Country: GB (occurrence: GB)
  Receive Date: 20190408
  Receipt Date: 20190415
  Transmission Date: 20190711
  Serious: Yes (Hospitalization, Other)
  Sender: FDA-Public Use
  Company Number: GB-MYLANLABS-2019M1031329

PATIENT
  Age: 20 Year
  Sex: Male

DRUGS (3)
  1. CLOZARIL [Suspect]
     Active Substance: CLOZAPINE
     Indication: SCHIZOPHRENIA
     Dosage: UNK
     Route: 048
     Dates: start: 20181024
  2. CLOZARIL [Suspect]
     Active Substance: CLOZAPINE
     Dosage: 300 MILLIGRAM
     Route: 048
  3. CLOZARIL [Suspect]
     Active Substance: CLOZAPINE
     Dosage: 250 MILLIGRAM
     Route: 048
     Dates: start: 20190313, end: 20190327

REACTIONS (10)
  - Musculoskeletal stiffness [Unknown]
  - Blood iron decreased [Unknown]
  - Respiratory tract infection [Recovered/Resolved]
  - Vomiting [Unknown]
  - Serum ferritin increased [Unknown]
  - Infective pericardial effusion [Recovered/Resolved]
  - Antipsychotic drug level increased [Unknown]
  - Sinus tachycardia [Not Recovered/Not Resolved]
  - Salivary hypersecretion [Unknown]
  - Sedation [Not Recovered/Not Resolved]

NARRATIVE: CASE EVENT DATE: 201903
